FAERS Safety Report 19047393 (Version 1)
Quarter: 2021Q1

REPORT INFORMATION
  Report Type: Spontaneous
  Country: US (occurrence: US)
  Receive Date: 20210323
  Receipt Date: 20210323
  Transmission Date: 20210420
  Serious: No
  Sender: FDA-Public Use
  Company Number: US-GW PHARMA-202103USGW01199

PATIENT

DRUGS (2)
  1. EPIDIOLEX [Suspect]
     Active Substance: CANNABIDIOL
     Indication: SEIZURE
     Dosage: MINIMAL DOSE, UNK
     Route: 048
     Dates: start: 2019, end: 2020
  2. EPIDIOLEX [Suspect]
     Active Substance: CANNABIDIOL
     Dosage: 300 MILLIGRAM, BID
     Route: 048
     Dates: start: 2020

REACTIONS (5)
  - Irritability [Unknown]
  - Seizure [Unknown]
  - Mood altered [Unknown]
  - Product dose omission issue [Unknown]
  - Dysarthria [Unknown]

NARRATIVE: CASE EVENT DATE: 202103
